FAERS Safety Report 7573651-3 (Version None)
Quarter: 2011Q2

REPORT INFORMATION
  Report Type: 
  Country: None (occurrence: None)
  Receive Date: 20110627
  Receipt Date: 20101228
  Transmission Date: 20111010
  Serious: Yes (Other)
  Sender: FDA-Public Use
  Company Number: IL-ROCHE-777113

PATIENT
  Age: 75 Year
  Sex: Male
  Weight: 82 kg

DRUGS (8)
  1. IRINOTECAN HYDROCHLORIDE [Concomitant]
     Dosage: UNITS REPORTED AS MG/M^2, DAY 1-2 EVERY 2 WEEKS
     Dates: start: 20071001
  2. FLUOROURACIL [Concomitant]
     Dosage: 400MG 600 MG, UNITS REPORTED AS MG/M^2, DAY 1-2 EVERY 2 WEEKS
     Dates: start: 20071001
  3. SIMVASTATIN [Concomitant]
  4. FUSID [Concomitant]
  5. LEUCOVORIN CALCIUM [Concomitant]
     Dosage: DOSE: 200 UNITS REPORTED AS MG/M^2, DAY 1-2 EVERY 2 WEEKS
     Dates: start: 20071001
  6. AVASTIN [Suspect]
     Route: 065
     Dates: start: 20071001
  7. ENALADEX [Concomitant]
  8. NORMALOL [Concomitant]

REACTIONS (6)
  - PULMONARY EMBOLISM [None]
  - ORAL CANDIDIASIS [None]
  - MUCOSAL INFLAMMATION [None]
  - ORAL FUNGAL INFECTION [None]
  - ASTHENIA [None]
  - AUTOIMMUNE THYROIDITIS [None]
